FAERS Safety Report 7433383-9 (Version None)
Quarter: 2011Q2

REPORT INFORMATION
  Report Type: 
  Country: None (occurrence: None)
  Receive Date: 20110422
  Receipt Date: 20110413
  Transmission Date: 20111010
  Serious: Yes (Death, Other)
  Sender: FDA-Public Use
  Company Number: AR-GENZYME-CLOF-1001562

PATIENT
  Age: 10 Year
  Sex: Male

DRUGS (4)
  1. CLOLAR [Suspect]
     Indication: ACUTE LYMPHOCYTIC LEUKAEMIA
     Dosage: UNK
     Route: 065
  2. CYTARABINE [Suspect]
     Dosage: UNK
     Route: 065
  3. CYTARABINE [Suspect]
     Indication: ACUTE LYMPHOCYTIC LEUKAEMIA
     Dosage: UNK
     Route: 065
  4. CLOLAR [Suspect]
     Dosage: UNK
     Route: 065

REACTIONS (3)
  - RENAL FAILURE ACUTE [None]
  - CHEMOTHERAPY MULTIPLE AGENTS SYSTEMIC [None]
  - PULMONARY OEDEMA [None]
